FAERS Safety Report 5827337-3 (Version None)
Quarter: 2008Q3

REPORT INFORMATION
  Report Type: 
  Country: None (occurrence: None)
  Receive Date: 20080730
  Receipt Date: 20080728
  Transmission Date: 20090109
  Serious: Yes (Death, Life-Threatening, Hospitalization, Other)
  Sender: FDA-Public Use
  Company Number: GB-WYE-G01908608

PATIENT
  Sex: Male

DRUGS (7)
  1. GEMTUZUMAB OZOGAMICIN [Suspect]
     Dosage: UNKNOWN
     Dates: start: 20080523, end: 20080602
  2. DAUNORUBICIN HCL [Suspect]
     Dosage: UNKNOWN
     Dates: start: 20080523, end: 20080602
  3. CYCLOPHOSPHAMIDE [Suspect]
     Dosage: UNKNOWN
     Dates: start: 20080702, end: 20080714
  4. IDARUBICIN HCL [Suspect]
     Dosage: UNKNOWN
     Dates: start: 20080707, end: 20080714
  5. METHOTREXATE [Suspect]
     Dosage: UNKNOWN
     Dates: start: 20080702, end: 20080714
  6. ARA-C [Suspect]
     Dosage: UNKNOWN
     Dates: start: 20080523, end: 20080602
  7. FLUDARABINE PHOSPHATE [Suspect]
     Dosage: UNKNOWN
     Dates: start: 20080702, end: 20080714

REACTIONS (7)
  - DRUG INEFFECTIVE [None]
  - GASTROINTESTINAL HAEMORRHAGE [None]
  - MUCOSAL INFLAMMATION [None]
  - MULTI-ORGAN FAILURE [None]
  - NEUTROPENIC SEPSIS [None]
  - PULMONARY HAEMORRHAGE [None]
  - SEPSIS [None]
